FAERS Safety Report 8349558-0 (Version None)
Quarter: 2012Q2

REPORT INFORMATION
  Report Type: 
  Country: None (occurrence: None)
  Receive Date: 20120510
  Receipt Date: 20120502
  Transmission Date: 20120825
  Serious: Yes (Hospitalization)
  Sender: FDA-Public Use
  Company Number: US-BAYER-2012-000477

PATIENT
  Age: 17 Year
  Sex: Female
  Weight: 70.295 kg

DRUGS (10)
  1. YAZ [Suspect]
     Indication: ACNE
     Dosage: UNK
     Dates: start: 20081201, end: 20090101
  2. VITAMIN E [Concomitant]
  3. FOCALIN [Concomitant]
     Indication: ATTENTION DEFICIT/HYPERACTIVITY DISORDER
     Dosage: 20 MG, UNK
     Dates: start: 20070101, end: 20110101
  4. ANAPROX DS [Concomitant]
     Dosage: 550 MG, UNK
  5. IBUPROFEN (ADVIL) [Concomitant]
     Indication: HEADACHE
     Dosage: 200 MG, OCCASIONALLY
  6. YAZ [Suspect]
     Indication: MENORRHAGIA
  7. PRIMROSE OIL [Concomitant]
  8. PERCOCET [Concomitant]
  9. AUGMENTIN [Concomitant]
  10. PROTONIX [Concomitant]

REACTIONS (7)
  - GALLBLADDER DISORDER [None]
  - DEFORMITY [None]
  - ANXIETY [None]
  - PAIN [None]
  - CHOLECYSTITIS CHRONIC [None]
  - ANHEDONIA [None]
  - BILIARY COLIC [None]
